FAERS Safety Report 9961257 (Version 1)
Quarter: 2014Q1

REPORT INFORMATION
  Report Type: Spontaneous
  Country: US (occurrence: US)
  Receive Date: 20140305
  Receipt Date: 20140305
  Transmission Date: 20141002
  Serious: No
  Sender: FDA-Public Use
  Company Number: US-BAYER-2014-033078

PATIENT
  Age: 82 Year
  Sex: Female

DRUGS (3)
  1. ALEVE GELCAPS [Suspect]
     Indication: ARTHRITIS
     Dosage: 1 DF, PRN
     Route: 048
     Dates: start: 201402, end: 20140227
  2. COREG [Concomitant]
  3. DIOVAN [Concomitant]

REACTIONS (1)
  - Drug ineffective [None]
